FAERS Safety Report 7790881-6 (Version None)
Quarter: 2011Q3

REPORT INFORMATION
  Report Type: 
  Country: None (occurrence: None)
  Receive Date: 20110930
  Receipt Date: 20110922
  Transmission Date: 20111222
  Serious: Yes (Hospitalization, Other)
  Sender: FDA-Public Use
  Company Number: JP-B.I. PHARMACEUTICALS,INC./RIDGEFIELD-2011-BP-22265NB

PATIENT
  Age: 97 Year
  Sex: Male

DRUGS (8)
  1. ALLOPURINOL [Suspect]
     Route: 065
  2. LASIX [Suspect]
     Route: 065
  3. MEXITIL [Concomitant]
     Route: 065
     Dates: end: 20110915
  4. GASMOTIN [Suspect]
     Route: 065
  5. ENALAPRIL MALEATE [Suspect]
     Route: 065
  6. PRADAXA [Suspect]
     Indication: ATRIAL FIBRILLATION
     Dosage: 110 MG
     Route: 048
     Dates: start: 20110725, end: 20110822
  7. DIGOXIN [Suspect]
     Route: 065
  8. ALDACTONE [Suspect]
     Route: 065

REACTIONS (10)
  - DIZZINESS [None]
  - LIMB INJURY [None]
  - GAIT DISTURBANCE [None]
  - FALL [None]
  - CONTUSION [None]
  - ALANINE AMINOTRANSFERASE INCREASED [None]
  - LIVER DISORDER [None]
  - ASPARTATE AMINOTRANSFERASE INCREASED [None]
  - SUBDURAL HAEMATOMA [None]
  - ACTIVATED PARTIAL THROMBOPLASTIN TIME PROLONGED [None]
